FAERS Safety Report 11595719 (Version 1)
Quarter: 2015Q4

REPORT INFORMATION
  Report Type: Spontaneous
  Country: IN (occurrence: None)
  Receive Date: 20151002
  Receipt Date: 20151002
  Transmission Date: 20160304
  Serious: Yes (Hospitalization)
  Sender: FDA-Public Use
  Company Number: 2015PL000202

PATIENT
  Age: 48 Year
  Sex: Male

DRUGS (1)
  1. ALLOPURINOL (ALLOPURINOL) TABLET [Suspect]
     Active Substance: ALLOPURINOL
     Indication: ARTHRALGIA

REACTIONS (10)
  - Rash erythematous [None]
  - Drug prescribing error [None]
  - Drug reaction with eosinophilia and systemic symptoms [None]
  - Dysuria [None]
  - Oropharyngeal pain [None]
  - Leukocytosis [None]
  - Rash pustular [None]
  - Skin exfoliation [None]
  - Drug hypersensitivity [None]
  - Mouth ulceration [None]
